FAERS Safety Report 19320350 (Version 1)
Quarter: 2021Q2

REPORT INFORMATION
  Report Type: Report from Study
  Country: US (occurrence: US)
  Receive Date: 20210527
  Receipt Date: 20210527
  Transmission Date: 20210717
  Serious: Yes (Hospitalization)
  Sender: FDA-Public Use
  Company Number: US-VERTEX PHARMACEUTICALS-2021-003147

PATIENT
  Age: 19 Year
  Sex: Male

DRUGS (4)
  1. FLOVENT [Concomitant]
     Active Substance: FLUTICASONE PROPIONATE
  2. TRIKAFTA [Suspect]
     Active Substance: ELEXACAFTOR\IVACAFTOR\TEZACAFTOR
     Dosage: ONE ORANGE PILL, QD
     Route: 048
     Dates: start: 20210416
  3. TRIKAFTA [Suspect]
     Active Substance: ELEXACAFTOR\IVACAFTOR\TEZACAFTOR
     Indication: CYSTIC FIBROSIS
     Dosage: 2 TABS (100MG ELEXA/ 50MG TEZA /IVA 75MG IVA) AM; 1 TAB (150MG IVA) PM
     Route: 048
     Dates: start: 20191218, end: 202102
  4. CIPROFLOXACIN. [Concomitant]
     Active Substance: CIPROFLOXACIN

REACTIONS (24)
  - Tremor [Recovered/Resolved]
  - Heart rate increased [Recovered/Resolved]
  - Insomnia [Recovered/Resolved]
  - Flushing [Recovered/Resolved]
  - White blood cell count increased [Unknown]
  - Asthma [Not Recovered/Not Resolved]
  - Communication disorder [Recovering/Resolving]
  - Abnormal behaviour [Not Recovered/Not Resolved]
  - Lymphocyte count decreased [Unknown]
  - Panic attack [Recovered/Resolved]
  - Feeling abnormal [Unknown]
  - Forced expiratory volume decreased [Recovered/Resolved]
  - Mouth ulceration [Unknown]
  - Pyrexia [Not Recovered/Not Resolved]
  - Disturbance in attention [Not Recovered/Not Resolved]
  - Anxiety [Unknown]
  - Blood pressure increased [Unknown]
  - Morbid thoughts [Recovered/Resolved]
  - Behaviour disorder [Recovered/Resolved]
  - Dehydration [Recovered/Resolved]
  - Neutrophil count increased [Unknown]
  - Dizziness [Recovering/Resolving]
  - Infective pulmonary exacerbation of cystic fibrosis [Unknown]
  - Tinnitus [Recovered/Resolved]

NARRATIVE: CASE EVENT DATE: 2021
